FAERS Safety Report 7599795-8 (Version None)
Quarter: 2011Q3

REPORT INFORMATION
  Report Type: 
  Country: None (occurrence: None)
  Receive Date: 20110711
  Receipt Date: 20110425
  Transmission Date: 20111222
  Serious: Yes (Hospitalization, Other)
  Sender: FDA-Public Use
  Company Number: US-BAYER-201038189NA

PATIENT
  Age: 19 Year
  Sex: Female
  Weight: 59 kg

DRUGS (7)
  1. SKELAXIN [Concomitant]
  2. YASMIN [Suspect]
     Indication: PRODUCT USED FOR UNKNOWN INDICATION
     Dosage: UNK
     Dates: start: 20041121, end: 20060914
  3. ALBUTEROL SULFATE AUTOHALER [Concomitant]
  4. MOTRIN [Concomitant]
     Dosage: 800 MG, UNK
  5. YAZ [Suspect]
     Indication: PRODUCT USED FOR UNKNOWN INDICATION
  6. DROSPIRENONE AND ETHINYL ESTRADIOL [Suspect]
     Indication: PRODUCT USED FOR UNKNOWN INDICATION
  7. ANCEF [Concomitant]

REACTIONS (4)
  - GALLBLADDER DISORDER [None]
  - NEPHROLITHIASIS [None]
  - CHOLECYSTITIS [None]
  - RENAL FAILURE [None]
